FAERS Safety Report 8141892-2 (Version None)
Quarter: 2012Q1

REPORT INFORMATION
  Report Type: 
  Country: None (occurrence: None)
  Receive Date: 20120216
  Receipt Date: 20120209
  Transmission Date: 20120608
  Serious: Yes (Hospitalization)
  Sender: FDA-Public Use
  Company Number: US-GLAXOSMITHKLINE-A0893045A

PATIENT
  Age: 57 Year
  Sex: Female
  Weight: 113.6 kg

DRUGS (7)
  1. AVANDARYL [Suspect]
     Indication: DIABETES MELLITUS
     Route: 048
     Dates: start: 20060403, end: 20090101
  2. AVANDIA [Suspect]
     Indication: DIABETES MELLITUS
     Dosage: 4MG PER DAY
     Route: 048
  3. AMARYL [Concomitant]
  4. COREG [Concomitant]
  5. ACEON [Concomitant]
  6. ALPRAZOLAM [Concomitant]
  7. LIPITOR [Concomitant]

REACTIONS (2)
  - CARDIAC DISORDER [None]
  - CORONARY ARTERY DISEASE [None]
